FAERS Safety Report 25078953 (Version 1)
Quarter: 2025Q1

REPORT INFORMATION
  Report Type: Spontaneous
  Country: IN (occurrence: IN)
  Receive Date: 20250314
  Receipt Date: 20250314
  Transmission Date: 20250409
  Serious: Yes (Hospitalization, Other)
  Sender: UNICHEM
  Company Number: IN-UNICHEM LABORATORIES LIMITED-UNI-2025-IN-001479

PATIENT

DRUGS (1)
  1. TOPIRAMATE [Suspect]
     Active Substance: TOPIRAMATE
     Indication: Alcoholic seizure
     Route: 065

REACTIONS (1)
  - Eosinophilic pneumonia acute [Recovered/Resolved]
